FAERS Safety Report 17071962 (Version 5)
Quarter: 2020Q4

REPORT INFORMATION
  Report Type: Report from Study
  Country: DE (occurrence: DE)
  Receive Date: 20191125
  Receipt Date: 20201127
  Transmission Date: 20210113
  Serious: Yes (Hospitalization)
  Sender: FDA-Public Use
  Company Number: DE-CELGENEUS-DEU-20191107175

PATIENT
  Age: 75 Year
  Sex: Female
  Weight: 80 kg

DRUGS (26)
  1. CLEXANE [Concomitant]
     Active Substance: ENOXAPARIN SODIUM
     Indication: THROMBOSIS PROPHYLAXIS
     Dosage: 1.6 MILLILITER
     Route: 058
     Dates: start: 20191115, end: 20191118
  2. ADENURIC [Concomitant]
     Active Substance: FEBUXOSTAT
     Indication: HYPERURICAEMIA
     Dosage: 80 MILLIGRAM
     Route: 048
     Dates: start: 20191108, end: 20191212
  3. POMALIDOMIDE [Suspect]
     Active Substance: POMALIDOMIDE
     Indication: MYELOFIBROSIS
     Dosage: .5 MILLIGRAM
     Route: 048
     Dates: start: 20191108, end: 20191114
  4. LERCANIDIPINE [Concomitant]
     Active Substance: LERCANIDIPINE
     Indication: HYPERTENSION
     Dosage: 20 MILLIGRAM
     Route: 048
     Dates: start: 20191108, end: 20191114
  5. FERRO-SANOL DUODENAL [Concomitant]
     Active Substance: FERROUS GLYCINE SULFATE
     Indication: IRON DEFICIENCY
     Dosage: 100 MILLIGRAM
     Route: 048
     Dates: start: 20191108, end: 20191212
  6. LAXOBERAL [Concomitant]
     Active Substance: SODIUM PICOSULFATE
     Route: 048
     Dates: start: 20200107
  7. FOLIC ACID. [Concomitant]
     Active Substance: FOLIC ACID
     Indication: PROPHYLAXIS
     Dosage: 5 MILLIGRAM
     Route: 048
     Dates: start: 20191108, end: 20191212
  8. LAXOBERAL [Concomitant]
     Active Substance: SODIUM PICOSULFATE
     Indication: CONSTIPATION
     Route: 048
     Dates: start: 20191108, end: 20191212
  9. RUXOLITINIB [Suspect]
     Active Substance: RUXOLITINIB
     Dosage: 30 MILLIGRAM
     Route: 048
     Dates: start: 20191030, end: 20191114
  10. PANTOPRAZOLE [Concomitant]
     Active Substance: PANTOPRAZOLE
     Indication: GASTRITIS PROPHYLAXIS
     Dosage: 40 MILLIGRAM
     Route: 048
     Dates: start: 20191108, end: 20191212
  11. CYSTINOL [Concomitant]
     Active Substance: HERBALS
     Route: 048
     Dates: start: 20200107, end: 20200107
  12. VITAMIN K+D [Concomitant]
     Indication: PROPHYLAXIS
     Dosage: 40 MILLIGRAM
     Route: 048
     Dates: start: 20191108, end: 20191212
  13. GEPAN [Concomitant]
     Indication: CYSTITIS
     Route: 050
     Dates: start: 20191108, end: 20191211
  14. ELIQUIS [Concomitant]
     Active Substance: APIXABAN
     Indication: THROMBOSIS PROPHYLAXIS
     Dosage: 50 MILLIGRAM
     Route: 048
     Dates: start: 20191108, end: 20191212
  15. NEPRESOL [Concomitant]
     Indication: HYPERTENSION
     Dosage: 50 MILLIGRAM
     Route: 048
     Dates: start: 20191108, end: 20191212
  16. NEPRESOL [Concomitant]
     Dosage: 25 MILLIGRAM
     Route: 048
     Dates: end: 20191114
  17. CYSTINOL [Concomitant]
     Active Substance: HERBALS
     Indication: CYSTITIS
     Route: 048
     Dates: start: 20191108, end: 20191212
  18. SPASMOLYT [Concomitant]
     Active Substance: TROSPIUM CHLORIDE
     Indication: CYSTITIS
     Dosage: 30 MILLIGRAM
     Route: 048
     Dates: start: 20191108, end: 20191212
  19. VERTIGOHEEL [Concomitant]
     Active Substance: HOMEOPATHICS
     Indication: VERTIGO
     Route: 048
     Dates: start: 20191108, end: 20191212
  20. VERTIGOHEEL [Concomitant]
     Active Substance: HOMEOPATHICS
     Route: 048
     Dates: start: 20200107, end: 20200107
  21. GEPAN [Concomitant]
     Route: 050
     Dates: start: 20200107, end: 20200107
  22. IBUPROFEN. [Concomitant]
     Active Substance: IBUPROFEN
     Indication: PAIN
     Route: 048
     Dates: start: 20191108, end: 20191212
  23. OPTIVE [Concomitant]
     Active Substance: CARBOXYMETHYLCELLULOSE SODIUM\GLYCERIN
     Indication: DRY EYE
     Route: 047
     Dates: start: 20191108, end: 20191212
  24. NOVOLIN NOS [Concomitant]
     Active Substance: INSULIN HUMAN
     Indication: PAIN
     Dosage: 1500 MILLIGRAM
     Route: 048
     Dates: start: 20191114, end: 20191118
  25. AMPICILLIN/SULBACTAM [Concomitant]
     Active Substance: AMPICILLIN SODIUM\SULBACTAM SODIUM
     Indication: URINARY TRACT INFECTION
     Dosage: 9 GRAM
     Route: 041
     Dates: start: 20191114, end: 20191119
  26. RUXOLITINIB [Suspect]
     Active Substance: RUXOLITINIB
     Indication: MYELOFIBROSIS
     Dosage: 20 MILLIGRAM
     Route: 048
     Dates: start: 20190920, end: 20191029

REACTIONS (3)
  - Fall [Recovered/Resolved]
  - Ankle fracture [Not Recovered/Not Resolved]
  - Dizziness [Recovering/Resolving]

NARRATIVE: CASE EVENT DATE: 20191114
